FAERS Safety Report 5169708-7 (Version None)
Quarter: 2006Q4

REPORT INFORMATION
  Report Type: 
  Country: None (occurrence: None)
  Receive Date: 20061212
  Receipt Date: 20061130
  Transmission Date: 20070319
  Serious: Yes (Hospitalization)
  Sender: FDA-Public Use
  Company Number: IT-BAYER-200616251GDS

PATIENT
  Age: 49 Year
  Sex: Male

DRUGS (4)
  1. ASPIRIN [Suspect]
     Indication: BACK PAIN
     Dosage: TOTAL DAILY DOSE: 1500 MG  UNIT DOSE: 500 MG
     Route: 048
     Dates: start: 20061021, end: 20061023
  2. VOLTAREN [Suspect]
     Indication: BACK PAIN
     Dosage: TOTAL DAILY DOSE: 100 MG  UNIT DOSE: 50 MG
     Route: 048
     Dates: start: 20061023, end: 20061023
  3. ZERINOLFLU (PARACETAMOL+CHLORPHENAMINE+SODIUM ASCORBATE) [Concomitant]
     Indication: BACK PAIN
     Dosage: TOTAL DAILY DOSE: 580 MG  UNIT DOSE: 580 MG
     Route: 048
     Dates: start: 20061022, end: 20061022
  4. TAVOR [Concomitant]
     Indication: DRUG USE FOR UNKNOWN INDICATION
     Dosage: TOTAL DAILY DOSE: 1 MG  UNIT DOSE: 1 MG
     Route: 048

REACTIONS (5)
  - ANAEMIA [None]
  - DUODENAL ULCER [None]
  - GASTRITIS EROSIVE [None]
  - MELAENA [None]
  - SYNCOPE [None]
